FAERS Safety Report 8130470-7 (Version None)
Quarter: 2012Q1

REPORT INFORMATION
  Report Type: 
  Country: None (occurrence: None)
  Receive Date: 20120210
  Receipt Date: 20120207
  Transmission Date: 20120608
  Serious: Yes (Other)
  Sender: FDA-Public Use
  Company Number: FR-MERCK-1202FRA00045

PATIENT
  Age: 54 Year
  Sex: Female

DRUGS (8)
  1. CYAMEMAZINE [Concomitant]
     Route: 065
  2. ZOPICLONE [Concomitant]
     Route: 065
  3. VENLAFAXINE HYDROCHLORIDE [Concomitant]
     Route: 048
  4. RITONAVIR [Concomitant]
     Indication: HIV INFECTION
     Route: 065
     Dates: start: 20110401, end: 20120115
  5. ISENTRESS [Suspect]
     Indication: HIV INFECTION
     Route: 048
     Dates: start: 20110401, end: 20120115
  6. DARUNAVIR [Suspect]
     Indication: HIV INFECTION
     Route: 048
     Dates: start: 20110401, end: 20120115
  7. CIPROFLOXACIN HCL [Suspect]
     Indication: URINARY TRACT INFECTION
     Route: 065
  8. LITHIUM [Concomitant]
     Route: 065

REACTIONS (1)
  - CYTOLYTIC HEPATITIS [None]
